FAERS Safety Report 23100542 (Version 2)
Quarter: 2023Q4

REPORT INFORMATION
  Report Type: Spontaneous
  Country: JP (occurrence: JP)
  Receive Date: 20231024
  Receipt Date: 20231109
  Transmission Date: 20240109
  Serious: Yes (Death, Hospitalization, Other)
  Sender: FDA-Public Use
  Company Number: JP-PFIZER INC-PV202300172808

PATIENT
  Age: 35 Year
  Sex: Female
  Weight: 73.6 kg

DRUGS (16)
  1. BESPONSA [Suspect]
     Active Substance: INOTUZUMAB OZOGAMICIN
     Indication: Acute lymphocytic leukaemia recurrent
     Dosage: 0.8 MG/M2 (1.0 MG, CYCLE 1, DAY 1)
     Route: 041
     Dates: start: 20221110, end: 20221110
  2. BESPONSA [Suspect]
     Active Substance: INOTUZUMAB OZOGAMICIN
     Dosage: 0.5 MG/M2 (0.65 MG, CYCLE 1, DAY 8)
     Dates: start: 20221117, end: 20221117
  3. BESPONSA [Suspect]
     Active Substance: INOTUZUMAB OZOGAMICIN
     Dosage: 0.5 MG/M2 (0.65 MG, CYCLE 1, DAY 15)
     Dates: start: 20221124, end: 20221124
  4. BESPONSA [Suspect]
     Active Substance: INOTUZUMAB OZOGAMICIN
     Dosage: CYCLE 2, DOSE 1
     Dates: start: 20230105, end: 20230105
  5. BESPONSA [Suspect]
     Active Substance: INOTUZUMAB OZOGAMICIN
     Dosage: CYCLE 2, DOSE 2
     Dates: start: 20230119, end: 20230119
  6. BESPONSA [Suspect]
     Active Substance: INOTUZUMAB OZOGAMICIN
     Dosage: CYCLE 2, DOSE 3
     Dates: start: 20230126, end: 20230126
  7. BESPONSA [Suspect]
     Active Substance: INOTUZUMAB OZOGAMICIN
     Dosage: CYCLE 3
     Dates: start: 20230209, end: 20230209
  8. BESPONSA [Suspect]
     Active Substance: INOTUZUMAB OZOGAMICIN
     Dosage: CYCLE 4
     Dates: start: 20230309, end: 20230309
  9. DEXAMETHASONE [Concomitant]
     Active Substance: DEXAMETHASONE
     Dosage: 9.9 MG, DAILY
     Dates: start: 20220708
  10. DEXAMETHASONE [Concomitant]
     Active Substance: DEXAMETHASONE
     Dosage: 9.9 MG, DAILY
     Dates: start: 20220714
  11. DEXAMETHASONE [Concomitant]
     Active Substance: DEXAMETHASONE
     Dosage: 9.9 MG, DAILY
     Route: 041
     Dates: start: 20220910
  12. DEXAMETHASONE [Concomitant]
     Active Substance: DEXAMETHASONE
     Dosage: 9.9 MG, DAILY
     Dates: start: 20221108
  13. DEXAMETHASONE [Concomitant]
     Active Substance: DEXAMETHASONE
     Dosage: 6.6 MG, DAILY
     Dates: start: 20221112
  14. DEXAMETHASONE [Concomitant]
     Active Substance: DEXAMETHASONE
     Dosage: 3.3 MG, DAILY
     Dates: start: 20221115, end: 20221118
  15. DEXAMETHASONE [Concomitant]
     Active Substance: DEXAMETHASONE
     Dosage: 12 MG, DAILY
     Dates: end: 202203
  16. DEXAMETHASONE [Concomitant]
     Active Substance: DEXAMETHASONE
     Dosage: 9 MG, DAILY
     Dates: start: 20220310

REACTIONS (16)
  - Abdominal pain [Fatal]
  - Device related infection [Unknown]
  - Haematological infection [Unknown]
  - Blast cell count increased [Unknown]
  - Mass [Unknown]
  - Pantoea agglomerans infection [Unknown]
  - Ureteric obstruction [Unknown]
  - White blood cell count increased [Unknown]
  - White blood cell count decreased [Recovering/Resolving]
  - Blood lactate dehydrogenase decreased [Unknown]
  - Neutrophil count decreased [Unknown]
  - C-reactive protein increased [Unknown]
  - Neoplasm progression [Unknown]
  - Oral pain [Unknown]
  - Pyrexia [Unknown]
  - Somnolence [Unknown]

NARRATIVE: CASE EVENT DATE: 20221115
